FAERS Safety Report 17841549 (Version 1)
Quarter: 2020Q2

REPORT INFORMATION
  Report Type: Spontaneous
  Country: MY (occurrence: MY)
  Receive Date: 20200529
  Receipt Date: 20200529
  Transmission Date: 20200714
  Serious: Yes (Other)
  Sender: FDA-Public Use
  Company Number: MY-BAUSCH-BL-2020-015448

PATIENT
  Age: 35 Year
  Sex: Female

DRUGS (9)
  1. CYCLOPHOSPHAMIDE. [Suspect]
     Active Substance: CYCLOPHOSPHAMIDE
     Indication: SYSTEMIC LUPUS ERYTHEMATOSUS
     Dosage: 0.5G/M2 (850MG)
     Route: 042
     Dates: start: 2019
  2. AZATHIOPRINE. [Suspect]
     Active Substance: AZATHIOPRINE
     Indication: SYSTEMIC LUPUS ERYTHEMATOSUS
     Route: 065
     Dates: start: 2010
  3. PREDNISOLONE. [Suspect]
     Active Substance: PREDNISOLONE
     Indication: SYSTEMIC LUPUS ERYTHEMATOSUS
     Dosage: CUMULATIVE DOSE OF GLUCOCORTICOIDS USAGE IN PREVIOUS ONE YEAR WAS 2.9G
     Route: 065
     Dates: start: 2010
  4. PREDNISOLONE. [Suspect]
     Active Substance: PREDNISOLONE
     Dosage: GRADUAL TAPERING PREDNISOLONE
     Route: 048
  5. METHYLPREDNISOLONE. [Suspect]
     Active Substance: METHYLPREDNISOLONE
     Indication: SYSTEMIC LUPUS ERYTHEMATOSUS
     Route: 042
     Dates: start: 2019
  6. HYDROXYCHLOROQUINE [Concomitant]
     Active Substance: HYDROXYCHLOROQUINE
     Indication: SYSTEMIC LUPUS ERYTHEMATOSUS
     Dates: start: 2010
  7. PREDNISOLONE. [Suspect]
     Active Substance: PREDNISOLONE
     Route: 048
     Dates: start: 2019
  8. PREDNISOLONE. [Suspect]
     Active Substance: PREDNISOLONE
     Indication: SYSTEMIC LUPUS ERYTHEMATOSUS
     Route: 048
     Dates: start: 2012
  9. PREDNISOLONE. [Suspect]
     Active Substance: PREDNISOLONE
     Route: 048
     Dates: start: 2013

REACTIONS (2)
  - Joint tuberculosis [Recovered/Resolved]
  - Bone tuberculosis [Recovered/Resolved]

NARRATIVE: CASE EVENT DATE: 2019
